FAERS Safety Report 11341641 (Version 2)
Quarter: 2015Q4

REPORT INFORMATION
  Report Type: Spontaneous
  Country: US (occurrence: US)
  Receive Date: 20150805
  Receipt Date: 20151209
  Transmission Date: 20160304
  Serious: No
  Sender: FDA-Public Use
  Company Number: US-009507513-1508USA000494

PATIENT
  Sex: Male

DRUGS (3)
  1. TEMODAR [Suspect]
     Active Substance: TEMOZOLOMIDE
     Indication: CARCINOID SYNDROME
  2. TEMODAR [Suspect]
     Active Substance: TEMOZOLOMIDE
     Indication: METASTATIC CARCINOID TUMOUR
     Dosage: 180 MG, QD, FOR 5 DAYS
     Route: 048
     Dates: start: 201411, end: 201507
  3. SANDOSTATIN [Concomitant]
     Active Substance: OCTREOTIDE ACETATE
     Dosage: UNK, QM

REACTIONS (7)
  - Gastrointestinal haemorrhage [Unknown]
  - Nausea [Unknown]
  - Iron deficiency anaemia [Recovered/Resolved]
  - Therapeutic response decreased [Not Recovered/Not Resolved]
  - Vertebroplasty [Recovered/Resolved]
  - Disease progression [Not Recovered/Not Resolved]
  - Thoracic vertebral fracture [Recovered/Resolved]

NARRATIVE: CASE EVENT DATE: 2014
